FAERS Safety Report 18156654 (Version 1)
Quarter: 2020Q3

REPORT INFORMATION
  Report Type: Spontaneous
  Country: US (occurrence: US)
  Receive Date: 20200816
  Receipt Date: 20200816
  Transmission Date: 20201103
  Serious: No
  Sender: FDA-Public Use
  Company Number: None

PATIENT
  Sex: Female

DRUGS (1)
  1. TECFIDERA [Suspect]
     Active Substance: DIMETHYL FUMARATE
     Indication: MULTIPLE SCLEROSIS
     Route: 048
     Dates: start: 20130801

REACTIONS (6)
  - Multiple sclerosis [None]
  - Musculoskeletal stiffness [None]
  - Tinnitus [None]
  - Condition aggravated [None]
  - Tremor [None]
  - Drug ineffective [None]
